FAERS Safety Report 6534770-3 (Version None)
Quarter: 2010Q1

REPORT INFORMATION
  Report Type: 
  Country: None (occurrence: None)
  Receive Date: 20100108
  Receipt Date: 20090820
  Transmission Date: 20100710
  Serious: No
  Sender: FDA-Public Use
  Company Number: 2009-00660

PATIENT
  Age: 62 Year
  Sex: Male
  Weight: 90.7194 kg

DRUGS (4)
  1. COLD REMEDY GEL SWABS [Suspect]
     Dosage: QD-BID - 2+ YEARS, FALL 2007 - RECENT
  2. FLECONIDE [Concomitant]
  3. ASPIRIN [Concomitant]
  4. MULTI-VITAMIN [Concomitant]

REACTIONS (1)
  - ANOSMIA [None]
